FAERS Safety Report 19082742 (Version 1)
Quarter: 2021Q2

REPORT INFORMATION
  Report Type: Spontaneous
  Country: US (occurrence: US)
  Receive Date: 20210401
  Receipt Date: 20210401
  Transmission Date: 20210717
  Serious: No
  Sender: FDA-Public Use
  Company Number: None

PATIENT
  Age: 76 Year
  Sex: Male

DRUGS (1)
  1. ZOLEDRONIC ACID [Suspect]
     Active Substance: ZOLEDRONIC ACID
     Dosage: OTHER FREQUENCY:YEARLY;?
     Route: 042
     Dates: start: 20210330

REACTIONS (7)
  - Nausea [None]
  - Pain in extremity [None]
  - Mobility decreased [None]
  - Pain [None]
  - Decreased appetite [None]
  - Back pain [None]
  - Vomiting [None]

NARRATIVE: CASE EVENT DATE: 20210331
